FAERS Safety Report 19437212 (Version 3)
Quarter: 2021Q4

REPORT INFORMATION
  Report Type: Spontaneous
  Country: CA (occurrence: CA)
  Receive Date: 20210618
  Receipt Date: 20211019
  Transmission Date: 20220303
  Serious: Yes (Hospitalization)
  Sender: FDA-Public Use
  Company Number: CA-SA-SAC20210616000993

PATIENT
  Age: 31 Year
  Sex: Female

DRUGS (9)
  1. ALEMTUZUMAB [Suspect]
     Active Substance: ALEMTUZUMAB
     Indication: Relapsing-remitting multiple sclerosis
     Dosage: 12 MG, QD
     Route: 041
  2. METHYLPREDNISOLONE SODIUM SUCCINATE [Suspect]
     Active Substance: METHYLPREDNISOLONE SODIUM SUCCINATE
     Indication: Premedication
     Dosage: 250 MG
     Route: 042
  3. ABILIFY [Concomitant]
     Active Substance: ARIPIPRAZOLE
     Route: 048
  4. ACYCLOVIR [Concomitant]
     Active Substance: ACYCLOVIR
     Indication: Premedication
     Dosage: 200 MG, BID
     Route: 048
  5. ACETAMINOPHEN [Concomitant]
     Active Substance: ACETAMINOPHEN
     Indication: Premedication
     Dosage: 650 MG
     Route: 048
  6. BENADRYL [Concomitant]
     Active Substance: DIPHENHYDRAMINE HYDROCHLORIDE
     Indication: Premedication
     Dosage: 50 MG
     Route: 048
  7. DESVENLAFAXINE SUCCINATE [Concomitant]
     Active Substance: DESVENLAFAXINE SUCCINATE
     Route: 048
  8. NAPROXEN [Concomitant]
     Active Substance: NAPROXEN
     Indication: Pain
     Dosage: 500 MG
     Route: 048
  9. ZANTAC [Concomitant]
     Active Substance: RANITIDINE HYDROCHLORIDE
     Indication: Premedication
     Dosage: 150 MG
     Route: 048

REACTIONS (18)
  - Agitation [Not Recovered/Not Resolved]
  - Throat irritation [Not Recovered/Not Resolved]
  - Tremor [Not Recovered/Not Resolved]
  - Gait disturbance [Not Recovered/Not Resolved]
  - Malaise [Not Recovered/Not Resolved]
  - Mobility decreased [Not Recovered/Not Resolved]
  - Mood swings [Not Recovered/Not Resolved]
  - Pain [Not Recovered/Not Resolved]
  - Wheezing [Not Recovered/Not Resolved]
  - Pain in extremity [Not Recovered/Not Resolved]
  - Viral infection [Not Recovered/Not Resolved]
  - Pruritus [Not Recovered/Not Resolved]
  - Cough [Not Recovered/Not Resolved]
  - Red blood cell count decreased [Not Recovered/Not Resolved]
  - Chest discomfort [Not Recovered/Not Resolved]
  - Nausea [Not Recovered/Not Resolved]
  - Fatigue [Not Recovered/Not Resolved]
  - Drug monitoring procedure not performed [Unknown]
